FAERS Safety Report 6516372-8 (Version None)
Quarter: 2009Q4

REPORT INFORMATION
  Report Type: 
  Country: None (occurrence: None)
  Receive Date: 20091223
  Receipt Date: 20091222
  Transmission Date: 20100525
  Serious: Yes (Death, Hospitalization)
  Sender: FDA-Public Use
  Company Number: A0836440A

PATIENT
  Age: 88 Year
  Sex: Male

DRUGS (9)
  1. ADVAIR DISKUS 100/50 [Suspect]
     Indication: ASTHMA
     Dosage: 2PUFF TWICE PER DAY
     Route: 055
     Dates: start: 20060101
  2. DIOVAN [Concomitant]
  3. AMARYL [Concomitant]
  4. SIMVASTATIN [Concomitant]
  5. MIRALAX [Concomitant]
  6. METAMUCIL [Concomitant]
  7. FLOMAX [Concomitant]
  8. ZITHROMAX [Concomitant]
  9. PREDNISONE [Concomitant]

REACTIONS (4)
  - OBSTRUCTION GASTRIC [None]
  - PNEUMONIA [None]
  - RENAL FAILURE [None]
  - RESPIRATORY FAILURE [None]
